FAERS Safety Report 10910505 (Version 1)
Quarter: 2015Q1

REPORT INFORMATION
  Report Type: Spontaneous
  Country: US (occurrence: US)
  Receive Date: 20150312
  Receipt Date: 20150312
  Transmission Date: 20150721
  Serious: No
  Sender: FDA-Public Use
  Company Number: US-BAYER-2015-029803

PATIENT
  Age: 89 Year
  Sex: Female

DRUGS (1)
  1. FINACEA [Suspect]
     Active Substance: AZELAIC ACID
     Indication: ROSACEA
     Dosage: UNK

REACTIONS (6)
  - Dyspnoea [None]
  - Lethargy [None]
  - Pain of skin [None]
  - Fatigue [None]
  - Asthenia [None]
  - Nausea [None]
